FAERS Safety Report 5907994-3 (Version None)
Quarter: 2008Q4

REPORT INFORMATION
  Report Type: 
  Country: None (occurrence: None)
  Receive Date: 20081003
  Receipt Date: 20080924
  Transmission Date: 20090506
  Serious: No
  Sender: FDA-Public Use
  Company Number: US-B.I. PHARMACEUTICALS,INC./RIDGEFIELD-2008-BP-14941BP

PATIENT
  Sex: Male

DRUGS (2)
  1. RANITIDINE [Suspect]
     Indication: DYSPEPSIA
     Dosage: 150MG
     Route: 048
  2. LEXAPRO [Suspect]
     Indication: ANXIETY
     Dosage: 10MG

REACTIONS (3)
  - ANXIETY [None]
  - EYE PRURITUS [None]
  - RASH [None]
